FAERS Safety Report 5017030-1 (Version None)
Quarter: 2006Q2

REPORT INFORMATION
  Report Type: 
  Country: None (occurrence: None)
  Receive Date: 20060526
  Receipt Date: 20060517
  Transmission Date: 20061013
  Serious: Yes (Other)
  Sender: FDA-Public Use
  Company Number: 224721

PATIENT
  Age: 67 Year
  Sex: Male
  Weight: 101.2 kg

DRUGS (18)
  1. AVASTIN [Suspect]
     Indication: NON-SMALL CELL LUNG CANCER
     Dosage: 15 MG/M2, Q3W, INTRAVENOUS
     Route: 042
     Dates: start: 20051213
  2. PEMETREXED (PEMETREXED) [Suspect]
     Indication: NON-SMALL CELL LUNG CANCER
     Dosage: 500 MG/M2, Q3W, INTRAVENOUS
     Route: 042
     Dates: start: 20051213
  3. CARBOPLATIN [Suspect]
     Indication: NON-SMALL CELL LUNG CANCER
     Dosage: 6 AUC, Q3W, INTRAVENOUS
     Route: 042
  4. NEXIUM [Concomitant]
  5. MORPHINE SULFATE [Concomitant]
  6. CLARITIN-D 24-HOUR (LORATADINE, PSEUDOEPHEDRINE SULFATE) [Concomitant]
  7. PREDNISONE [Concomitant]
  8. PERIDEX (CHLORHEXIDINE GLUCONATE) [Concomitant]
  9. LIDOCAINE [Concomitant]
  10. MAALOX (ALUMINUM HYDROXIDE, MAGNESIUM HYDROXIDE) [Concomitant]
  11. BENADRYL [Concomitant]
  12. NYSTATIN [Concomitant]
  13. METOPROLOL SUCCINATE [Concomitant]
  14. SOTALOL HCL [Concomitant]
  15. MEVACOR [Concomitant]
  16. ZESTRIL [Concomitant]
  17. ADVAIR DISKUS (FLUTICASONE PROPIONATE, SALMETEROL XINAFOATE) [Concomitant]
  18. IPRATROPIUM BROMIDE [Concomitant]

REACTIONS (11)
  - ANAEMIA [None]
  - BLOOD CALCIUM DECREASED [None]
  - BLOOD CREATININE INCREASED [None]
  - BLOOD UREA INCREASED [None]
  - DEHYDRATION [None]
  - DYSPNOEA [None]
  - FATIGUE [None]
  - HILAR LYMPHADENOPATHY [None]
  - HYPERKALAEMIA [None]
  - LUNG NEOPLASM [None]
  - THROMBOCYTOPENIA [None]
